FAERS Safety Report 19477938 (Version 2)
Quarter: 2021Q3

REPORT INFORMATION
  Report Type: Other
  Country: US (occurrence: US)
  Receive Date: 20210630
  Receipt Date: 20210708
  Transmission Date: 20211014
  Serious: Yes (Hospitalization, Other)
  Sender: FDA-Public Use
  Company Number: US-ROCHE-2859273

PATIENT
  Age: 66 Year
  Sex: Female
  Weight: 88.98 kg

DRUGS (5)
  1. MAGNESIA [Concomitant]
     Active Substance: MAGNESIUM HYDROXIDE
  2. ACTEMRA [Suspect]
     Active Substance: TOCILIZUMAB
     Indication: RHEUMATOID ARTHRITIS
     Dosage: PEN INJECTOR
     Route: 058
  3. ACTEMRA [Suspect]
     Active Substance: TOCILIZUMAB
  4. ACTEMRA [Suspect]
     Active Substance: TOCILIZUMAB
     Indication: ARTHRITIS
     Route: 058
     Dates: start: 202104
  5. ACTEMRA [Suspect]
     Active Substance: TOCILIZUMAB

REACTIONS (6)
  - Gout [Not Recovered/Not Resolved]
  - Diabetes mellitus [Not Recovered/Not Resolved]
  - Pain [Unknown]
  - Intercepted product storage error [Unknown]
  - Product quality issue [Unknown]
  - Product dose omission issue [Unknown]

NARRATIVE: CASE EVENT DATE: 202104
